FAERS Safety Report 4758853-3 (Version None)
Quarter: 2005Q3

REPORT INFORMATION
  Report Type: 
  Country: None (occurrence: None)
  Receive Date: 20050826
  Receipt Date: 20050819
  Transmission Date: 20060218
  Serious: Yes (Other)
  Sender: FDA-Public Use
  Company Number: 2005118144

PATIENT
  Sex: Female
  Weight: 68.0396 kg

DRUGS (2)
  1. LIPITOR [Suspect]
     Indication: BLOOD CHOLESTEROL
     Dosage: 40 MG (40 MG, 1 IN 1 D)
  2. MONOPRIL [Concomitant]

REACTIONS (6)
  - CONDITION AGGRAVATED [None]
  - DYSPEPSIA [None]
  - LUNG DISORDER [None]
  - MUSCLE SPASMS [None]
  - PAIN [None]
  - PNEUMONIA [None]
